FAERS Safety Report 8087162-2 (Version None)
Quarter: 2012Q1

REPORT INFORMATION
  Report Type: 
  Country: None (occurrence: None)
  Receive Date: 20120128
  Receipt Date: 20110513
  Transmission Date: 20120608
  Serious: No
  Sender: FDA-Public Use
  Company Number: US-ABBOTT-11P-163-0725645-00

PATIENT
  Sex: Female

DRUGS (1)
  1. HUMIRA [Suspect]
     Indication: RHEUMATOID ARTHRITIS
     Dates: start: 20110101, end: 20110511

REACTIONS (4)
  - NAUSEA [None]
  - PRURITUS GENERALISED [None]
  - INJECTION SITE ERYTHEMA [None]
  - INJECTION SITE PAPULE [None]
